FAERS Safety Report 6639872-9 (Version None)
Quarter: 2010Q1

REPORT INFORMATION
  Report Type: 
  Country: None (occurrence: None)
  Receive Date: 20100315
  Receipt Date: 20100226
  Transmission Date: 20100710
  Serious: Yes (Death)
  Sender: FDA-Public Use
  Company Number: 2010000704

PATIENT
  Age: 67 Year
  Sex: Female
  Weight: 80 kg

DRUGS (5)
  1. ERLOTINIB HYDROCHLORIDE [Suspect]
     Indication: NON-SMALL CELL LUNG CANCER
     Dosage: (MG), ORAL
     Route: 048
     Dates: start: 20080915, end: 20091110
  2. SUNITINIB MALATE [Suspect]
     Indication: NON-SMALL CELL LUNG CANCER
     Dosage: ORAL
     Route: 048
     Dates: start: 20080915, end: 20091110
  3. RYTMONORM (PROPAFENONE HYDROCHLORIDE) [Concomitant]
  4. CISPLATIN [Concomitant]
  5. ETOPOSIDE (ETOPOSIIDE) [Concomitant]

REACTIONS (3)
  - ANAEMIA [None]
  - METASTASES TO LIVER [None]
  - SUDDEN DEATH [None]
